FAERS Safety Report 8476530-2 (Version None)
Quarter: 2012Q2

REPORT INFORMATION
  Report Type: 
  Country: None (occurrence: None)
  Receive Date: 20120628
  Receipt Date: 20120615
  Transmission Date: 20120825
  Serious: Yes (Death, Hospitalization)
  Sender: FDA-Public Use
  Company Number: AU-MYLANLABS-2012S1012508

PATIENT
  Age: 78 Year
  Sex: Female

DRUGS (11)
  1. TRANDOLAPRIL [Suspect]
     Dosage: 4 MG/D
     Route: 065
  2. ATORVASTATIN [Concomitant]
     Dosage: 80 MG/D
     Route: 065
  3. ALENDRONATE SODIUM [Concomitant]
     Dosage: 70MG WEEKLY
     Route: 065
  4. FELODIPINE [Concomitant]
     Dosage: 10 MG/D
     Route: 065
  5. TRIFLUOPERAZINE HCL [Concomitant]
     Dosage: 5 MG/D
     Route: 065
  6. INFLUENZA VIRUS VACCINE [Concomitant]
     Dosage: ANNUAL
     Route: 065
  7. FORMOTEROL W/BUDESONIDE [Concomitant]
     Dosage: DF = BUDESONIDE 200/FORMOTEROL 6
     Route: 065
  8. CLOPIDOGREL [Concomitant]
     Dosage: 75 MG/D
     Route: 065
  9. PANTOPRAZOLE [Concomitant]
     Dosage: 40 MG/D
     Route: 065
  10. LITHIUM CARBONATE [Concomitant]
     Dosage: 125 MG/D
     Route: 065
  11. ASPIRIN [Concomitant]
     Route: 065

REACTIONS (5)
  - ACUTE CORONARY SYNDROME [None]
  - RENAL FAILURE ACUTE [None]
  - PNEUMONIA [None]
  - ANGIOEDEMA [None]
  - PULMONARY HAEMORRHAGE [None]
